FAERS Safety Report 25235043 (Version 1)
Quarter: 2025Q2

REPORT INFORMATION
  Report Type: Spontaneous
  Country: US (occurrence: None)
  Receive Date: 20250424
  Receipt Date: 20250424
  Transmission Date: 20250717
  Serious: Yes (Hospitalization)
  Sender: FDA-CTU
  Company Number: None

PATIENT
  Age: 69 Year
  Sex: Male

DRUGS (1)
  1. ACTEMRA ACTPEN [Suspect]
     Active Substance: TOCILIZUMAB
     Dosage: FREQUENCY : EVERY OTHER WEEK;?

REACTIONS (1)
  - Cardiac failure [None]

NARRATIVE: CASE EVENT DATE: 20250416
